FAERS Safety Report 25902529 (Version 1)
Quarter: 2025Q4

REPORT INFORMATION
  Report Type: Spontaneous
  Country: EU (occurrence: EU)
  Receive Date: 20251009
  Receipt Date: 20251009
  Transmission Date: 20260118
  Serious: Yes (Other)
  Sender: MYLAN
  Company Number: None

PATIENT
  Age: 49 Year
  Sex: Female

DRUGS (4)
  1. ATORVASTATIN [Suspect]
     Active Substance: ATORVASTATIN
     Indication: Hypercholesterolaemia
     Dosage: 10 MILLIGRAM, QD (24 HOURS,TORVAST 10 MG FILM-COATED TABLETS, 1 TABLET IN THE EVENING)
     Dates: start: 202104, end: 202105
  2. ATORVASTATIN [Suspect]
     Active Substance: ATORVASTATIN
     Dosage: 10 MILLIGRAM, QD (24 HOURS,TORVAST 10 MG FILM-COATED TABLETS, 1 TABLET IN THE EVENING)
     Route: 048
     Dates: start: 202104, end: 202105
  3. ATORVASTATIN [Suspect]
     Active Substance: ATORVASTATIN
     Dosage: 10 MILLIGRAM, QD (24 HOURS,TORVAST 10 MG FILM-COATED TABLETS, 1 TABLET IN THE EVENING)
     Route: 048
     Dates: start: 202104, end: 202105
  4. ATORVASTATIN [Suspect]
     Active Substance: ATORVASTATIN
     Dosage: 10 MILLIGRAM, QD (24 HOURS,TORVAST 10 MG FILM-COATED TABLETS, 1 TABLET IN THE EVENING)
     Dates: start: 202104, end: 202105

REACTIONS (3)
  - Tendon disorder [Unknown]
  - Blood creatine phosphokinase increased [Unknown]
  - Myalgia [Unknown]

NARRATIVE: CASE EVENT DATE: 20210501
